FAERS Safety Report 7403533-9 (Version None)
Quarter: 2011Q2

REPORT INFORMATION
  Report Type: 
  Country: None (occurrence: None)
  Receive Date: 20110401
  Receipt Date: 20110120
  Transmission Date: 20111010
  Serious: Yes (Life-Threatening, Hospitalization)
  Sender: FDA-Public Use
  Company Number: LEO-2011-00147

PATIENT
  Age: 63 Year
  Sex: Male

DRUGS (7)
  1. INNOHEP [Suspect]
     Indication: EMBOLISM VENOUS
     Dosage: 1800 IU (1800 IU, 1 IN 1 D, SUBCUTANEOUS
     Route: 058
     Dates: start: 20101213, end: 20101223
  2. CORTICOIDS (CORTICOSTEROIDS) [Concomitant]
  3. ANTIEMETICS (ANTIEMETICS AND ANTINAUSEANTS) [Concomitant]
  4. WARFARIN (WARFARIN) (TABLETS) [Suspect]
     Indication: EMBOLISM VENOUS
     Dosage: 5 MG (5 MG, 1 IN 1 D) ORAL
     Route: 048
     Dates: start: 20101213, end: 20110107
  5. LANSOPRAZOLE [Concomitant]
  6. FLUIDS (BARIUM SULFATE) [Concomitant]
  7. CHEMOTHERAPY (CHEMOTHERAPEUTICS) [Concomitant]

REACTIONS (4)
  - TUMOUR HAEMORRHAGE [None]
  - VOMITING [None]
  - PYLORIC STENOSIS [None]
  - DYSPHAGIA [None]
